FAERS Safety Report 9140592 (Version 2)
Quarter: 2013Q2

REPORT INFORMATION
  Report Type: Spontaneous
  Country: US (occurrence: US)
  Receive Date: 20130305
  Receipt Date: 20130401
  Transmission Date: 20140414
  Serious: Yes (Other)
  Sender: FDA-Public Use
  Company Number: US-ABBOTT-13P-163-1058535-00

PATIENT
  Age: 68 Year
  Sex: Female

DRUGS (7)
  1. PROMETRIUM [Suspect]
     Indication: PREVENTION OF ENDOMETRIAL HYPERPLASIA
     Dosage: ON DAYS 1-12
     Route: 048
     Dates: start: 201107
  2. PROMETRIUM [Suspect]
     Dosage: ON DAYS 1-12
     Route: 048
     Dates: start: 201212, end: 20130219
  3. PREMARIN [Suspect]
     Indication: MENOPAUSAL DEPRESSION
     Route: 065
     Dates: end: 201107
  4. PREMARIN [Suspect]
     Indication: ANXIETY
     Route: 048
     Dates: start: 201107
  5. PROVERA [Suspect]
     Indication: PREVENTION OF ENDOMETRIAL HYPERPLASIA
     Route: 065
     Dates: end: 201107
  6. DIVIGEL [Suspect]
     Indication: MENOPAUSAL DEPRESSION
     Route: 061
     Dates: start: 201107
  7. DIVIGEL [Suspect]
     Indication: ANXIETY
     Dosage: ON DAYS 1-12
     Route: 048
     Dates: start: 201107

REACTIONS (1)
  - Endometrial cancer stage I [Unknown]
